FAERS Safety Report 7194837-6 (Version None)
Quarter: 2010Q4

REPORT INFORMATION
  Report Type: 
  Country: None (occurrence: None)
  Receive Date: 20101223
  Receipt Date: 20100920
  Transmission Date: 20110411
  Serious: No
  Sender: FDA-Public Use
  Company Number: US-AMGEN-KDL439413

PATIENT

DRUGS (6)
  1. ENBREL [Suspect]
     Indication: PRODUCT USED FOR UNKNOWN INDICATION
     Dosage: 50 MG, QWK
     Route: 058
  2. GABAPENTIN [Concomitant]
     Dosage: 100 MG, UNK
  3. NAPROXEN [Concomitant]
     Dosage: 250 MG, UNK
  4. METFORMIN [Concomitant]
     Dosage: 500 MG, UNK
  5. LEVOTHYROXINE SODIUM [Concomitant]
     Dosage: 100 A?G, UNK
  6. AMITRIPTYLINE HCL [Concomitant]
     Dosage: 25 MG, UNK

REACTIONS (6)
  - CONTUSION [None]
  - DERMATITIS CONTACT [None]
  - ERYTHEMA [None]
  - FURUNCLE [None]
  - LOCAL SWELLING [None]
  - STAPHYLOCOCCAL INFECTION [None]
